FAERS Safety Report 24349906 (Version 1)
Quarter: 2024Q3

REPORT INFORMATION
  Report Type: Spontaneous
  Country: FR (occurrence: FR)
  Receive Date: 20240923
  Receipt Date: 20240923
  Transmission Date: 20241016
  Serious: No
  Sender: ROCHE
  Company Number: FR-ROCHE-3476098

PATIENT
  Age: 2 Month
  Sex: Female
  Weight: 4.35 kg

DRUGS (1)
  1. TAMIFLU [Suspect]
     Active Substance: OSELTAMIVIR PHOSPHATE
     Indication: Influenza
     Dosage: 6 MG/ML SYRUP
     Route: 048

REACTIONS (3)
  - Product administration error [Unknown]
  - Overdose [Unknown]
  - Fatigue [Unknown]
